FAERS Safety Report 4394536-X (Version None)
Quarter: 2004Q3

REPORT INFORMATION
  Report Type: 
  Country: None (occurrence: None)
  Receive Date: 20040707
  Receipt Date: 20040625
  Transmission Date: 20050211
  Serious: Yes (Hospitalization)
  Sender: FDA-Public Use
  Company Number: 04P-163-0264839-00

PATIENT
  Age: 51 Year
  Sex: Female
  Weight: 136.4 kg

DRUGS (5)
  1. HUMIRA [Suspect]
     Indication: RHEUMATOID ARTHRITIS
     Dosage: 40 MG, 1 IN 2 WK, SUBCUTANEOUS
     Route: 058
     Dates: start: 20040201
  2. METHOTREXATE [Concomitant]
  3. MELOXICAM [Concomitant]
  4. GLUCOPHAGE [Concomitant]
  5. GLIMEPIRIDE [Concomitant]

REACTIONS (6)
  - CELLULITIS [None]
  - DRUG EFFECT DECREASED [None]
  - FALL [None]
  - JOINT DISLOCATION [None]
  - VENOUS INSUFFICIENCY [None]
  - VENOUS STASIS [None]
